FAERS Safety Report 13027468 (Version 2)
Quarter: 2017Q1

REPORT INFORMATION
  Report Type: Report from Study
  Country: US (occurrence: US)
  Receive Date: 20161214
  Receipt Date: 20170103
  Transmission Date: 20170428
  Serious: Yes (Hospitalization)
  Sender: FDA-Public Use
  Company Number: US-VALIDUS PHARMACEUTICALS LLC-US-2016VAL002831

PATIENT

DRUGS (5)
  1. AUBAGIO [Suspect]
     Active Substance: TERIFLUNOMIDE
     Indication: MULTIPLE SCLEROSIS
     Dosage: 14 MILLIGRAM(S); DAILY
     Route: 048
     Dates: start: 20160819
  2. AUBAGIO [Suspect]
     Active Substance: TERIFLUNOMIDE
     Dosage: 14 MILLIGRAM(S); EVERY OTHER DAY
     Route: 048
     Dates: start: 2016
  3. LASIX [Suspect]
     Active Substance: FUROSEMIDE
     Indication: PERIPHERAL SWELLING
     Dosage: 20 MILLIGRAM(S); TWICE A DAY
     Route: 065
     Dates: start: 2016
  4. BACLOFEN. [Concomitant]
     Active Substance: BACLOFEN
     Indication: PRODUCT USED FOR UNKNOWN INDICATION
     Dosage: UNK
  5. AUBAGIO [Suspect]
     Active Substance: TERIFLUNOMIDE
     Dosage: 14 MILLIGRAM(S); DAILY
     Route: 048
     Dates: start: 20160901

REACTIONS (9)
  - Dehydration [Recovered/Resolved]
  - Weight decreased [Not Recovered/Not Resolved]
  - Off label use [Unknown]
  - Dry mouth [Not Recovered/Not Resolved]
  - Dysgeusia [Not Recovered/Not Resolved]
  - Abdominal pain [Unknown]
  - Renal disorder [Recovered/Resolved]
  - Gastrointestinal disorder [Recovered/Resolved]
  - Asthenia [Unknown]

NARRATIVE: CASE EVENT DATE: 2016
